FAERS Safety Report 18194696 (Version 1)
Quarter: 2020Q3

REPORT INFORMATION
  Report Type: Report from Study
  Country: ES (occurrence: ES)
  Receive Date: 20200825
  Receipt Date: 20200825
  Transmission Date: 20201103
  Serious: Yes (Other)
  Sender: FDA-Public Use
  Company Number: ES-TEVA-2020-ES-1818494

PATIENT
  Age: 53 Year
  Sex: Male

DRUGS (2)
  1. LINEZOLID. [Suspect]
     Active Substance: LINEZOLID
     Indication: OSTEOMYELITIS
     Route: 065
  2. TEDIZOLID [Suspect]
     Active Substance: TEDIZOLID
     Indication: OSTEOMYELITIS
     Dosage: 200 MILLIGRAM DAILY;
     Route: 065

REACTIONS (5)
  - Lymphopenia [Unknown]
  - Off label use [Unknown]
  - Thrombocytopenia [Unknown]
  - Gastrointestinal disorder [Unknown]
  - Leukopenia [Unknown]
